FAERS Safety Report 25880796 (Version 1)
Quarter: 2025Q4

REPORT INFORMATION
  Report Type: Spontaneous
  Country: EU (occurrence: EU)
  Receive Date: 20251004
  Receipt Date: 20251004
  Transmission Date: 20260117
  Serious: Yes (Other)
  Sender: NOVARTIS
  Company Number: None

PATIENT
  Age: 56 Year
  Sex: Female
  Weight: 60 kg

DRUGS (3)
  1. TEGRETOL [Suspect]
     Active Substance: CARBAMAZEPINE
     Indication: Product used for unknown indication
     Dosage: 3600 MG, QD
     Route: 048
     Dates: start: 20250714, end: 20250714
  2. NAPROXEN [Suspect]
     Active Substance: NAPROXEN
     Indication: Product used for unknown indication
     Dosage: 2750 MG, QD
     Route: 048
     Dates: start: 20250714, end: 20250714
  3. AMLODIPINE BESYLATE\PERINDOPRIL ERBUMINE [Suspect]
     Active Substance: AMLODIPINE BESYLATE\PERINDOPRIL ERBUMINE
     Indication: Product used for unknown indication
     Dosage: 10 DOSAGE FORM, QD (1 DF = 1 TABLETA)
     Route: 048
     Dates: start: 20250714, end: 20250714

REACTIONS (3)
  - Suicide attempt [Unknown]
  - Intentional overdose [Unknown]
  - Somnolence [Unknown]

NARRATIVE: CASE EVENT DATE: 20250714
